FAERS Safety Report 14519789 (Version 1)
Quarter: 2018Q1

REPORT INFORMATION
  Report Type: Spontaneous
  Country: US (occurrence: US)
  Receive Date: 20180212
  Receipt Date: 20180212
  Transmission Date: 20180509
  Serious: Yes (Disabling, Other)
  Sender: FDA-Public Use
  Company Number: US-REGENERON PHARMACEUTICALS, INC.-2018-13287

PATIENT

DRUGS (2)
  1. EYLEA [Suspect]
     Active Substance: AFLIBERCEPT
     Indication: NEOVASCULAR AGE-RELATED MACULAR DEGENERATION
     Dosage: 2 MG, MONTHLY, BOTH EYES
     Route: 031
     Dates: start: 20161025
  2. EYLEA [Suspect]
     Active Substance: AFLIBERCEPT
     Dosage: 2 MG, MONTHLY, BOTH EYES, LAST DOSE
     Route: 031
     Dates: start: 20180129, end: 20180129

REACTIONS (2)
  - Blindness transient [Recovering/Resolving]
  - Endophthalmitis [Unknown]

NARRATIVE: CASE EVENT DATE: 20180129
